FAERS Safety Report 22225755 (Version 1)
Quarter: 2023Q2

REPORT INFORMATION
  Report Type: Other
  Country: AU (occurrence: AU)
  Receive Date: 20230418
  Receipt Date: 20230418
  Transmission Date: 20230721
  Serious: Yes (Other)
  Sender: FDA-Public Use
  Company Number: AU-CELLTRION INC.-2023AU007862

PATIENT

DRUGS (5)
  1. RITUXIMAB [Suspect]
     Active Substance: RITUXIMAB
     Indication: Product used for unknown indication
  2. ROMIPLOSTIM [Suspect]
     Active Substance: ROMIPLOSTIM
     Indication: Product used for unknown indication
  3. ELTROMBOPAG [Suspect]
     Active Substance: ELTROMBOPAG
     Indication: Product used for unknown indication
  4. MYCOPHENOLATE MOFETIL [Suspect]
     Active Substance: MYCOPHENOLATE MOFETIL
     Indication: Product used for unknown indication
  5. PREDNISOLONE [Suspect]
     Active Substance: PREDNISOLONE
     Indication: Product used for unknown indication

REACTIONS (11)
  - Haemorrhage intracranial [Unknown]
  - Platelet glycoprotein gene mutation [Unknown]
  - Thrombocytopenia [Unknown]
  - Heavy menstrual bleeding [Unknown]
  - Thrombocytosis [Unknown]
  - Purpura [Unknown]
  - Biopsy bone marrow abnormal [Unknown]
  - Headache [Unknown]
  - Mental disorder [Unknown]
  - Platelet count decreased [Unknown]
  - Drug ineffective [Unknown]
